FAERS Safety Report 4586858-4 (Version None)
Quarter: 2005Q1

REPORT INFORMATION
  Report Type: 
  Country: None (occurrence: None)
  Receive Date: 20050218
  Receipt Date: 20050209
  Transmission Date: 20050727
  Serious: Yes (Other)
  Sender: FDA-Public Use
  Company Number: IE-NOVOPROD-242202

PATIENT
  Sex: Male
  Weight: 104 kg

DRUGS (1)
  1. MIXTARD 30 NOVOLET [Suspect]

REACTIONS (2)
  - LACERATION [None]
  - MEDICAL DEVICE COMPLICATION [None]
